FAERS Safety Report 4270073-8 (Version None)
Quarter: 2004Q1

REPORT INFORMATION
  Report Type: 
  Country: None (occurrence: None)
  Receive Date: 20040113
  Receipt Date: 20040113
  Transmission Date: 20041129
  Serious: Yes (Hospitalization)
  Sender: FDA-Public Use
  Company Number: None

PATIENT
  Age: 77 Year
  Sex: Male

DRUGS (13)
  1. KETOCONAZOLE [Suspect]
     Indication: PROSTATE CANCER
     Dosage: 400 MG TID
  2. FENTANYL [Concomitant]
  3. LORAZEPAM [Concomitant]
  4. LASIX [Concomitant]
  5. PREDNISONE [Concomitant]
  6. RABEPRAZOLE SODIUM [Concomitant]
  7. ISORDIL [Concomitant]
  8. ALBUTEROL [Concomitant]
  9. TAMSULOSIN [Concomitant]
  10. ATROVENT [Concomitant]
  11. CAPTOPRIL [Concomitant]
  12. METOPROLOL [Concomitant]
  13. TRAMADOL HCL [Concomitant]

REACTIONS (4)
  - ADRENAL INSUFFICIENCY [None]
  - CONFUSIONAL STATE [None]
  - HYPOGLYCAEMIA [None]
  - TREMOR [None]
